FAERS Safety Report 4954836-9 (Version None)
Quarter: 2006Q1

REPORT INFORMATION
  Report Type: 
  Country: None (occurrence: None)
  Receive Date: 20060327
  Receipt Date: 20051031
  Transmission Date: 20060701
  Serious: Yes (Death)
  Sender: FDA-Public Use
  Company Number: US-MERCK-0511USA00298

PATIENT
  Age: 63 Year
  Sex: Female
  Weight: 49 kg

DRUGS (5)
  1. VIOXX [Suspect]
     Indication: OSTEOARTHRITIS
     Route: 048
     Dates: start: 19990728, end: 20031224
  2. DARVOCET [Concomitant]
     Indication: PAIN
     Route: 048
     Dates: start: 19990209, end: 20030922
  3. DARVOCET [Concomitant]
     Indication: HEADACHE
     Route: 048
     Dates: start: 19990209, end: 20030922
  4. VERELAN [Concomitant]
     Indication: BLOOD PRESSURE
     Route: 065
     Dates: start: 19990308, end: 20031201
  5. [THERAPY UNSPECIFIED] [Concomitant]
     Indication: DYSPNOEA
     Route: 065

REACTIONS (8)
  - ACUTE MYOCARDIAL INFARCTION [None]
  - ANGIOPATHY [None]
  - CARDIAC FAILURE CONGESTIVE [None]
  - CHEST PAIN [None]
  - CHRONIC OBSTRUCTIVE PULMONARY DISEASE [None]
  - PALPITATIONS [None]
  - PERIPHERAL VASCULAR DISORDER [None]
  - VENOUS INSUFFICIENCY [None]
